FAERS Safety Report 9923491 (Version 2)
Quarter: 2014Q1

REPORT INFORMATION
  Report Type: Spontaneous
  Country: US (occurrence: US)
  Receive Date: 20140225
  Receipt Date: 20140225
  Transmission Date: 20141002
  Serious: No
  Sender: FDA-Public Use
  Company Number: US-AMGEN-USASP2013079283

PATIENT
  Age: 48 Year
  Sex: Male
  Weight: 70.3 kg

DRUGS (5)
  1. ENBREL [Suspect]
     Indication: PRODUCT USED FOR UNKNOWN INDICATION
     Dosage: 50 MG, QWK
     Route: 058
     Dates: start: 201311
  2. PREDNISONE [Concomitant]
     Dosage: 5 MG/ML, UNK
  3. METHOTREXATE [Concomitant]
     Dosage: 20 MG, UNK
  4. FOLIC ACID [Concomitant]
     Dosage: 5 MG, UNK
  5. VICODIN HP [Concomitant]
     Dosage: UNK, 10-300 MG

REACTIONS (2)
  - Heart rate increased [Unknown]
  - Nasopharyngitis [Recovered/Resolved]
